FAERS Safety Report 19704996 (Version 3)
Quarter: 2021Q3

REPORT INFORMATION
  Report Type: Report from Study
  Country: US (occurrence: US)
  Receive Date: 20210816
  Receipt Date: 20210831
  Transmission Date: 20211014
  Serious: Yes (Other)
  Sender: FDA-Public Use
  Company Number: US-AMGEN-USACT2021125414

PATIENT
  Age: 57 Year
  Sex: Male
  Weight: 72.5 kg

DRUGS (3)
  1. AMG 510 [Suspect]
     Active Substance: AMG-510
     Indication: LUNG ADENOCARCINOMA
     Dosage: UNK (CYCLE 1)
     Route: 065
     Dates: start: 20210514
  2. AMG 510 [Suspect]
     Active Substance: AMG-510
     Dosage: 480 MILLIGRAM, QD (TOTAL DOSE: 3360 MG)
     Route: 065
     Dates: start: 20210813, end: 20210820
  3. AMG 510 [Suspect]
     Active Substance: AMG-510
     Dosage: TOTAL DOSE: 18240 MG (CYCLE 4)
     Route: 065
     Dates: start: 20210716

REACTIONS (3)
  - Hypokalaemia [Recovered/Resolved]
  - Aspartate aminotransferase increased [Not Recovered/Not Resolved]
  - Alanine aminotransferase increased [Not Recovered/Not Resolved]

NARRATIVE: CASE EVENT DATE: 20210805
